FAERS Safety Report 19625068 (Version 1)
Quarter: 2021Q3

REPORT INFORMATION
  Report Type: Spontaneous
  Country: US (occurrence: US)
  Receive Date: 20210728
  Receipt Date: 20210728
  Transmission Date: 20211014
  Serious: Yes (Other)
  Sender: FDA-Public Use
  Company Number: US-GLAXOSMITHKLINE-US2021GSK158888

PATIENT
  Sex: Female

DRUGS (2)
  1. RANITIDINE. [Suspect]
     Active Substance: RANITIDINE
     Indication: HYPERSENSITIVITY
     Dosage: UNK, QD, 300MG TABLETS CUT IN HALF
     Route: 065
     Dates: start: 201205, end: 201908
  2. RANITIDINE. [Suspect]
     Active Substance: RANITIDINE
     Indication: HYPERSENSITIVITY
     Dosage: UNK, QD, 300MG TABLETS CUT IN HALF
     Route: 065
     Dates: start: 201205, end: 201908

REACTIONS (1)
  - Breast cancer [Unknown]
